FAERS Safety Report 7052393-7 (Version None)
Quarter: 2010Q4

REPORT INFORMATION
  Report Type: 
  Country: None (occurrence: None)
  Receive Date: 20101019
  Receipt Date: 20101012
  Transmission Date: 20110411
  Serious: Yes (Other)
  Sender: FDA-Public Use
  Company Number: CA-BAYER-201036889NA

PATIENT
  Age: 78 Year
  Sex: Female
  Weight: 59 kg

DRUGS (5)
  1. AVELOX [Suspect]
     Indication: PRODUCT USED FOR UNKNOWN INDICATION
     Route: 042
  2. ACETAMINOPHEN [Concomitant]
  3. CLINDAMYCIN [Concomitant]
  4. DIMENHYDRINATE [Concomitant]
  5. TEMAZEPAM [Concomitant]

REACTIONS (3)
  - DIZZINESS [None]
  - EYE PAIN [None]
  - TINNITUS [None]
